FAERS Safety Report 14675738 (Version 1)
Quarter: 2018Q1

REPORT INFORMATION
  Report Type: Spontaneous
  Country: US (occurrence: US)
  Receive Date: 20180323
  Receipt Date: 20180323
  Transmission Date: 20180509
  Serious: No
  Sender: FDA-Public Use
  Company Number: US-REGENERON PHARMACEUTICALS, INC.-2017-22618

PATIENT

DRUGS (2)
  1. ARCALYST [Suspect]
     Active Substance: RILONACEPT
     Indication: CRYOPYRIN ASSOCIATED PERIODIC SYNDROME
  2. ARCALYST [Suspect]
     Active Substance: RILONACEPT
     Indication: FAMILIAL COLD AUTOINFLAMMATORY SYNDROME
     Dosage: 220 MG, WEEKLY
     Route: 058

REACTIONS (1)
  - Drug dose omission [Unknown]

NARRATIVE: CASE EVENT DATE: 20170911
